FAERS Safety Report 8340329-8 (Version None)
Quarter: 2012Q2

REPORT INFORMATION
  Report Type: 
  Country: None (occurrence: None)
  Receive Date: 20120507
  Receipt Date: 20120507
  Transmission Date: 20120825
  Serious: Yes (Other)
  Sender: FDA-Public Use
  Company Number: None

PATIENT
  Sex: Male
  Weight: 80.7 kg

DRUGS (1)
  1. SUCCINYLCHOLINE CHLORIDE [Suspect]
     Dosage: |DOSAGETEXT: 1.5MG|

REACTIONS (4)
  - COUGH [None]
  - PRODUCT MEASURED POTENCY ISSUE [None]
  - INCORRECT PRODUCT STORAGE [None]
  - DRUG INEFFECTIVE [None]
